FAERS Safety Report 7931221-9 (Version None)
Quarter: 2011Q4

REPORT INFORMATION
  Report Type: 
  Country: None (occurrence: None)
  Receive Date: 20111121
  Receipt Date: 20111116
  Transmission Date: 20120403
  Serious: Yes (Death, Life-Threatening, Hospitalization, Other)
  Sender: FDA-Public Use
  Company Number: AT-ASTRAZENECA-2011SE43612

PATIENT
  Age: 68 Year
  Sex: Male

DRUGS (1)
  1. IRESSA [Suspect]
     Indication: LUNG ADENOCARCINOMA
     Route: 048
     Dates: start: 20110507, end: 20110701

REACTIONS (4)
  - DIARRHOEA [None]
  - CARDIAC ARREST [None]
  - THROMBOCYTOPENIA [None]
  - INTESTINAL HAEMORRHAGE [None]
